FAERS Safety Report 25058815 (Version 1)
Quarter: 2025Q1

REPORT INFORMATION
  Report Type: Spontaneous
  Country: US (occurrence: None)
  Receive Date: 20250310
  Receipt Date: 20250310
  Transmission Date: 20250409
  Serious: No
  Sender: FDA-CTU
  Company Number: None

PATIENT
  Age: 74 Year
  Sex: Female
  Weight: 49.95 kg

DRUGS (1)
  1. MIEBO [Suspect]
     Active Substance: PERFLUOROHEXYLOCTANE
     Indication: Dry eye
     Dosage: 1 DROP(S)  TWICE A DAY OPHTHALMIC
     Route: 047
     Dates: start: 20250307, end: 20250310

REACTIONS (2)
  - Eye pruritus [None]
  - Hypoaesthesia [None]

NARRATIVE: CASE EVENT DATE: 20250307
